FAERS Safety Report 4705685-8 (Version None)
Quarter: 2005Q2

REPORT INFORMATION
  Report Type: 
  Country: None (occurrence: None)
  Receive Date: 20050629
  Receipt Date: 20050610
  Transmission Date: 20051028
  Serious: Yes (Other)
  Sender: FDA-Public Use
  Company Number: 215226

PATIENT
  Age: 50 Year
  Sex: Female
  Weight: 39 kg

DRUGS (4)
  1. RITUXAN [Suspect]
     Indication: NON-HODGKIN'S LYMPHOMA
     Dosage: 500 MG, IV DRIP
     Route: 041
     Dates: start: 20020107, end: 20020129
  2. CHEMOTHERAPY TREATMENTS NOS (ANTINEOPLASTIC AGENT NOS) [Concomitant]
  3. POLARAMINE [Concomitant]
  4. IBUPROFEN [Concomitant]

REACTIONS (5)
  - BONE MARROW DISORDER [None]
  - HAEMOGLOBIN DECREASED [None]
  - LEUKOPENIA [None]
  - NEUTROPENIA [None]
  - PLATELET COUNT DECREASED [None]
